FAERS Safety Report 4286442-6 (Version None)
Quarter: 2004Q1

REPORT INFORMATION
  Report Type: 
  Country: None (occurrence: None)
  Receive Date: 20040204
  Receipt Date: 20040127
  Transmission Date: 20041129
  Serious: Yes (Hospitalization)
  Sender: FDA-Public Use
  Company Number: 2004196618FR

PATIENT
  Age: 77 Year
  Sex: Female

DRUGS (9)
  1. XANAX [Suspect]
     Dosage: 0.25 MG/DAY, ORAL
     Route: 048
     Dates: end: 20040109
  2. CIPROFLOXACIN [Suspect]
     Dosage: 1500 MG/DAY, ORAL
     Route: 048
     Dates: start: 20031230, end: 20040108
  3. RAMIPRIL [Suspect]
     Dosage: 2.5 MG/DAY, ORAL
     Route: 048
     Dates: end: 20040108
  4. ROCEPHIN [Concomitant]
  5. NITROGLYCERIN [Concomitant]
  6. CO-EFFERALGAN [Concomitant]
  7. ASPEGIC 325 [Concomitant]
  8. RIVOTRIL [Concomitant]
  9. UMULINE (INSULIN HUMAN ZINC SUSPENSION) [Concomitant]

REACTIONS (1)
  - AGRANULOCYTOSIS [None]
